FAERS Safety Report 9440515 (Version 1)
Quarter: 2013Q3

REPORT INFORMATION
  Report Type: Report from Study
  Country: US (occurrence: US)
  Receive Date: 20130805
  Receipt Date: 20130805
  Transmission Date: 20140515
  Serious: Yes (Other)
  Sender: FDA-Public Use
  Company Number: US-PFIZER INC-2011279317

PATIENT
  Age: 80 Year
  Sex: Female
  Weight: 91.6 kg

DRUGS (3)
  1. LYRICA [Suspect]
     Indication: POLYNEUROPATHY
     Dosage: 100 MG, 1X/DAY
     Route: 048
  2. LYRICA [Suspect]
     Dosage: 100 MG, 3X/DAY
     Route: 048
  3. LYRICA [Suspect]
     Dosage: UNK, 2X/DAY
     Route: 048
     Dates: start: 201301

REACTIONS (14)
  - Chronic obstructive pulmonary disease [Unknown]
  - Laceration [Unknown]
  - Off label use [Not Recovered/Not Resolved]
  - Aphagia [Recovering/Resolving]
  - Hypoaesthesia [Unknown]
  - Pain in extremity [Unknown]
  - Insomnia [Unknown]
  - Somnolence [Unknown]
  - Feeling abnormal [Recovering/Resolving]
  - Weight decreased [Recovering/Resolving]
  - Skin disorder [Recovering/Resolving]
  - Bedridden [Recovering/Resolving]
  - Erythema [Unknown]
  - Drug withdrawal syndrome [Recovering/Resolving]
